FAERS Safety Report 12288454 (Version 1)
Quarter: 2016Q2

REPORT INFORMATION
  Report Type: Spontaneous
  Country: US (occurrence: US)
  Receive Date: 20160420
  Receipt Date: 20160420
  Transmission Date: 20160815
  Serious: No
  Sender: FDA-Public Use
  Company Number: US-TEVA-652738USA

PATIENT
  Sex: Female

DRUGS (1)
  1. COPAXONE [Suspect]
     Active Substance: GLATIRAMER ACETATE
     Dosage: FORM STRENGTH UNKNOWN

REACTIONS (6)
  - Swelling [Unknown]
  - Sneezing [Unknown]
  - Erythema [Unknown]
  - Lacrimation increased [Unknown]
  - Drug hypersensitivity [Unknown]
  - Rash [Unknown]
